FAERS Safety Report 6608382-7 (Version None)
Quarter: 2010Q1

REPORT INFORMATION
  Report Type: 
  Country: None (occurrence: None)
  Receive Date: 20100225
  Receipt Date: 20100225
  Transmission Date: 20100710
  Serious: Yes (Hospitalization)
  Sender: FDA-Public Use
  Company Number: None

PATIENT
  Sex: Female
  Weight: 95 kg

DRUGS (6)
  1. ABRAXANE [Suspect]
     Indication: BREAST CANCER
     Dosage: 189 MG WEEKLY IV
     Route: 042
     Dates: start: 20090929, end: 20100209
  2. METFORMIN HYDROCHLORIDE [Concomitant]
  3. ACTOS [Concomitant]
  4. SYNTHROID [Concomitant]
  5. KEFLEX [Concomitant]
  6. PEPCID [Concomitant]

REACTIONS (3)
  - DEHYDRATION [None]
  - ORTHOSTATIC HYPOTENSION [None]
  - PRESYNCOPE [None]
